FAERS Safety Report 7583356-0 (Version None)
Quarter: 2011Q2

REPORT INFORMATION
  Report Type: 
  Country: None (occurrence: None)
  Receive Date: 20110623
  Receipt Date: 20110617
  Transmission Date: 20111010
  Serious: Yes (Death)
  Sender: FDA-Public Use
  Company Number: 2011SP028599

PATIENT
  Sex: Male

DRUGS (1)
  1. INTRON A [Suspect]
     Indication: CHRONIC LEUKAEMIA

REACTIONS (2)
  - FEELING ABNORMAL [None]
  - ADVERSE DRUG REACTION [None]
